FAERS Safety Report 4443094-X (Version None)
Quarter: 2004Q3

REPORT INFORMATION
  Report Type: 
  Country: None (occurrence: None)
  Receive Date: 20040908
  Receipt Date: 20040827
  Transmission Date: 20050211
  Serious: Yes (Hospitalization, Other)
  Sender: FDA-Public Use
  Company Number: US-JNJFOC-20040404789

PATIENT
  Sex: Female
  Weight: 80.74 kg

DRUGS (19)
  1. REMICADE [Suspect]
     Dosage: EVERY 8 WEEKS
     Route: 042
  2. REMICADE [Suspect]
     Route: 042
  3. REMICADE [Suspect]
     Indication: CROHN'S DISEASE
     Route: 042
  4. CELEBREX [Concomitant]
  5. PRENATAL VITAMINS [Concomitant]
  6. PRENATAL VITAMINS [Concomitant]
  7. PRENATAL VITAMINS [Concomitant]
  8. PRENATAL VITAMINS [Concomitant]
  9. PRENATAL VITAMINS [Concomitant]
  10. PRENATAL VITAMINS [Concomitant]
  11. PRENATAL VITAMINS [Concomitant]
  12. PRENATAL VITAMINS [Concomitant]
  13. LOMOTIL [Concomitant]
  14. LOMOTIL [Concomitant]
  15. IMODIUM [Concomitant]
  16. PENTASA [Concomitant]
  17. NEURONTIN [Concomitant]
  18. TIZANIDINE HCL [Concomitant]
  19. DIAZEPAM [Concomitant]

REACTIONS (16)
  - ASTHENIA [None]
  - COORDINATION ABNORMAL [None]
  - DRUG EXPOSURE DURING PREGNANCY [None]
  - ELECTROMYOGRAM ABNORMAL [None]
  - GASTROENTERITIS VIRAL [None]
  - HYPOAESTHESIA [None]
  - LOSS OF CONSCIOUSNESS [None]
  - MIGRAINE WITH AURA [None]
  - MUSCLE SPASMS [None]
  - NASAL CYST [None]
  - NEUROPATHY PERIPHERAL [None]
  - PAIN IN EXTREMITY [None]
  - PHARYNGEAL CYST [None]
  - PREGNANCY [None]
  - PRURITUS GENERALISED [None]
  - VISUAL DISTURBANCE [None]
